FAERS Safety Report 4818332-1 (Version None)
Quarter: 2005Q4

REPORT INFORMATION
  Report Type: 
  Country: None (occurrence: None)
  Receive Date: 20051102
  Receipt Date: 20050920
  Transmission Date: 20060501
  Serious: Yes (Hospitalization)
  Sender: FDA-Public Use
  Company Number: 2005AP05013

PATIENT
  Age: 20184 Day
  Sex: Male

DRUGS (11)
  1. IRESSA [Suspect]
     Indication: LUNG NEOPLASM MALIGNANT
     Route: 048
     Dates: start: 20050725, end: 20050816
  2. IRESSA [Suspect]
     Indication: BRONCHIOLOALVEOLAR CARCINOMA
     Route: 048
     Dates: start: 20050725, end: 20050816
  3. OLMETEC [Suspect]
     Indication: HYPERTENSION
     Route: 048
     Dates: start: 20050607, end: 20050816
  4. ACECOL [Suspect]
     Indication: HYPERTENSION
     Route: 048
     Dates: start: 20050607, end: 20050816
  5. CALBLOCK [Concomitant]
     Route: 048
     Dates: start: 20050606, end: 20050816
  6. MUCODYNE [Concomitant]
     Indication: SPUTUM RETENTION
     Route: 048
     Dates: start: 20050620, end: 20050816
  7. CLEANAL [Concomitant]
     Indication: SPUTUM RETENTION
     Route: 048
     Dates: start: 20050708, end: 20050816
  8. COLDRIN [Concomitant]
     Indication: BRONCHITIS
     Route: 048
     Dates: start: 20050620, end: 20050816
  9. COLDRIN [Concomitant]
     Indication: COUGH
     Route: 048
     Dates: start: 20050620, end: 20050816
  10. CARBOPLATIN [Concomitant]
     Indication: BRONCHIOLOALVEOLAR CARCINOMA
     Dates: start: 20050711
  11. DOCETAXAL [Concomitant]
     Indication: BRONCHIOLOALVEOLAR CARCINOMA
     Dates: start: 20050711

REACTIONS (4)
  - ALCOHOL USE [None]
  - DEHYDRATION [None]
  - DYSPNOEA [None]
  - RENAL FAILURE [None]
